FAERS Safety Report 10916035 (Version 1)
Quarter: 2015Q1

REPORT INFORMATION
  Report Type: Spontaneous
  Country: US (occurrence: US)
  Receive Date: 20150316
  Receipt Date: 20150316
  Transmission Date: 20150721
  Serious: Yes (Other)
  Sender: FDA-Public Use
  Company Number: US-MALLINCKRODT-T201501602

PATIENT
  Age: 52 Year
  Sex: Female

DRUGS (2)
  1. METHADONE [Suspect]
     Active Substance: METHADONE HYDROCHLORIDE
     Dosage: 10 MG, UNK
     Route: 065
  2. METHADONE [Suspect]
     Active Substance: METHADONE HYDROCHLORIDE
     Indication: PRODUCT USED FOR UNKNOWN INDICATION
     Dosage: 5 MG, UNK
     Route: 065

REACTIONS (1)
  - Adrenal insufficiency [Recovering/Resolving]
